FAERS Safety Report 25610937 (Version 1)
Quarter: 2025Q3

REPORT INFORMATION
  Report Type: Spontaneous
  Country: US (occurrence: None)
  Receive Date: 20250725
  Receipt Date: 20250725
  Transmission Date: 20251020
  Serious: Yes (Hospitalization)
  Sender: FDA-CTU
  Company Number: None

PATIENT
  Age: 55 Year
  Sex: Male
  Weight: 113 kg

DRUGS (10)
  1. EVEROLIMUS [Suspect]
     Active Substance: EVEROLIMUS
     Indication: Renal transplant
     Dosage: FREQUENCY : TWICE A DAY;?
     Route: 048
     Dates: start: 20250419
  2. TACROLIMUS [Suspect]
     Active Substance: TACROLIMUS
     Indication: Renal transplant
     Dosage: FREQUENCY : TWICE A DAY;?
     Route: 048
     Dates: start: 20241217
  3. BUMETANIDE [Concomitant]
     Active Substance: BUMETANIDE
  4. AMLODIPINE BESYLATE [Concomitant]
     Active Substance: AMLODIPINE BESYLATE
  5. ATORVASTATIN [Concomitant]
     Active Substance: ATORVASTATIN
  6. CARVEDILOL [Concomitant]
     Active Substance: CARVEDILOL
  7. CLONIDINE [Concomitant]
     Active Substance: CLONIDINE
  8. EVEROLIMUS [Concomitant]
     Active Substance: EVEROLIMUS
  9. GABAPENTIN [Concomitant]
     Active Substance: GABAPENTIN
  10. MULTIVITAMIN ADULTS 50+ [Concomitant]

REACTIONS (1)
  - Pericarditis uraemic [None]

NARRATIVE: CASE EVENT DATE: 20250723
